FAERS Safety Report 8149119-2 (Version None)
Quarter: 2012Q1

REPORT INFORMATION
  Report Type: 
  Country: None (occurrence: None)
  Receive Date: 20120218
  Receipt Date: 20110830
  Transmission Date: 20120608
  Serious: No
  Sender: FDA-Public Use
  Company Number: US-ALLERGAN-1111638US

PATIENT
  Sex: Male

DRUGS (4)
  1. BOTULINUM TOXIN TYPE A [Suspect]
     Indication: TORTICOLLIS
     Dosage: UNK
     Route: 030
     Dates: start: 20110610, end: 20110610
  2. BUSPAR [Concomitant]
     Indication: ANXIETY
  3. BACLOFEN [Concomitant]
     Indication: FEELING JITTERY
  4. XANAX [Concomitant]
     Indication: ANXIETY

REACTIONS (2)
  - INJECTION SITE PAIN [None]
  - MYALGIA [None]
